FAERS Safety Report 20744864 (Version 3)
Quarter: 2022Q4

REPORT INFORMATION
  Report Type: Spontaneous
  Country: IN (occurrence: IN)
  Receive Date: 20220425
  Receipt Date: 20221216
  Transmission Date: 20230113
  Serious: Yes (Other)
  Sender: FDA-Public Use
  Company Number: IN-PFIZER INC-202200578146

PATIENT
  Age: 68 Year
  Sex: Male

DRUGS (10)
  1. LORLATINIB [Suspect]
     Active Substance: LORLATINIB
     Dosage: 100MG PO DAILY X 3 MONTHS
     Route: 048
     Dates: start: 20220323
  2. AZITHROMYCIN [Suspect]
     Active Substance: AZITHROMYCIN
  3. CETIRIZINE HYDROCHLORIDE [Concomitant]
     Active Substance: CETIRIZINE HYDROCHLORIDE
     Dosage: 10MG HS
  4. PANTOCID DSR [Concomitant]
     Dosage: 1 DF, DAILY
  5. SUPRADYN ACTIVE [Concomitant]
     Dosage: 1 DF, DAILY
  6. CALCIUM [Concomitant]
     Active Substance: CALCIUM
     Dosage: 1 DF, 2X/DAY
  7. VITAMIN D3 [Concomitant]
     Active Substance: CHOLECALCIFEROL
     Dosage: 60K ONCE A MONTH
  8. ALLEX [LORATADINE] [Concomitant]
  9. LOPERAMIDE [Concomitant]
     Active Substance: LOPERAMIDE
     Indication: Diarrhoea
     Dosage: 1 SOS IN CASE OF DIARRHOEA
  10. MOISTUREX [Concomitant]
     Dosage: LOTION LOCAL APPLICATION X 3 MONTH

REACTIONS (3)
  - Tachycardia [Unknown]
  - Hypertension [Unknown]
  - Haemoptysis [Unknown]
